FAERS Safety Report 8986460 (Version 4)
Quarter: 2013Q4

REPORT INFORMATION
  Report Type: Spontaneous
  Country: GB (occurrence: GB)
  Receive Date: 20121227
  Receipt Date: 20131030
  Transmission Date: 20140711
  Serious: Yes (Hospitalization, Other)
  Sender: FDA-Public Use
  Company Number: PHHY2012GB117789

PATIENT
  Age: 45 Year
  Sex: Female

DRUGS (1)
  1. TRAMADOL [Suspect]
     Indication: NECK PAIN
     Dosage: 100-200MG
     Dates: start: 201212, end: 20121205

REACTIONS (5)
  - Visual impairment [Unknown]
  - Hallucination [Not Recovered/Not Resolved]
  - Liver function test abnormal [Unknown]
  - Overdose [Unknown]
  - Withdrawal syndrome [Unknown]
